FAERS Safety Report 15171011 (Version 1)
Quarter: 2018Q3

REPORT INFORMATION
  Report Type: Spontaneous
  Country: US (occurrence: US)
  Receive Date: 20180622
  Receipt Date: 20180622
  Transmission Date: 20181010
  Serious: No
  Sender: FDA-Public Use
  Company Number: None

PATIENT
  Age: 24 Year
  Sex: Female

DRUGS (2)
  1. LUPRON DEPOT [Suspect]
     Active Substance: LEUPROLIDE ACETATE
     Indication: ENDOMETRIOSIS
  2. LUPRON DEPOT [Suspect]
     Active Substance: LEUPROLIDE ACETATE
     Indication: ENDOMETRIOSIS
     Dosage: OTHER FREQUENCY:EVERY 3 MONTHS;?
     Route: 030
     Dates: start: 20180425

REACTIONS (2)
  - Irritability [None]
  - Therapy change [None]

NARRATIVE: CASE EVENT DATE: 20180620
